FAERS Safety Report 10343873 (Version 1)
Quarter: 2014Q3

REPORT INFORMATION
  Report Type: Spontaneous
  Country: JP (occurrence: JP)
  Receive Date: 20140726
  Receipt Date: 20140726
  Transmission Date: 20150326
  Serious: Yes (Other)
  Sender: FDA-Public Use
  Company Number: PHHY2013JP158804

PATIENT

DRUGS (1)
  1. GLIVEC [Suspect]
     Active Substance: IMATINIB MESYLATE
     Indication: GASTROINTESTINAL STROMAL TUMOUR

REACTIONS (4)
  - Metastases to central nervous system [Unknown]
  - Aphagia [Unknown]
  - Metastases to liver [Unknown]
  - Performance status decreased [Unknown]

NARRATIVE: CASE EVENT DATE: 201304
